FAERS Safety Report 19423944 (Version 7)
Quarter: 2021Q4

REPORT INFORMATION
  Report Type: Spontaneous
  Country: CA (occurrence: CA)
  Receive Date: 20210616
  Receipt Date: 20211015
  Transmission Date: 20220303
  Serious: Yes (Other)
  Sender: FDA-Public Use
  Company Number: CA-PFIZER INC-2021665221

PATIENT
  Age: 65 Year
  Sex: Male
  Weight: 68.03 kg

DRUGS (3)
  1. XELJANZ [Suspect]
     Active Substance: TOFACITINIB CITRATE
     Indication: Colitis ulcerative
     Dosage: 5 MG, 2X/DAY
     Route: 048
     Dates: start: 20210430, end: 202109
  2. FASENRA [Concomitant]
     Active Substance: BENRALIZUMAB
     Indication: Asthma
     Dosage: UNK
  3. PREDNISONE [Concomitant]
     Active Substance: PREDNISONE
     Indication: Asthma
     Dosage: 10 MG, DAILY (10MG EVERY DAY)/ 10 MG . STARTING WITH 40 MG TAPERED DOSE.

REACTIONS (11)
  - Haematochezia [Not Recovered/Not Resolved]
  - Drug ineffective [Unknown]
  - Therapeutic product effect incomplete [Unknown]
  - Quality of life decreased [Unknown]
  - Frequent bowel movements [Not Recovered/Not Resolved]
  - Acne [Not Recovered/Not Resolved]
  - Oral herpes [Recovered/Resolved]
  - Myalgia [Unknown]
  - Pain [Unknown]
  - Musculoskeletal stiffness [Unknown]
  - C-reactive protein increased [Unknown]

NARRATIVE: CASE EVENT DATE: 20210601
